FAERS Safety Report 9652793 (Version 2)
Quarter: 2015Q2

REPORT INFORMATION
  Report Type: Spontaneous
  Country: JP (occurrence: JP)
  Receive Date: 20131029
  Receipt Date: 20150512
  Transmission Date: 20150821
  Serious: Yes (Hospitalization)
  Sender: FDA-Public Use
  Company Number: PHHY2013JP118936

PATIENT
  Age: 68 Year
  Sex: Female

DRUGS (1)
  1. CANDESARTAN CILEXETIL. [Suspect]
     Active Substance: CANDESARTAN CILEXETIL
     Indication: PRODUCT USED FOR UNKNOWN INDICATION
     Route: 065

REACTIONS (5)
  - Angioedema [Unknown]
  - Swollen tongue [Recovering/Resolving]
  - Upper respiratory tract congestion [Unknown]
  - Dysarthria [Recovering/Resolving]
  - Livedo reticularis [Unknown]
